FAERS Safety Report 8434070-0 (Version None)
Quarter: 2012Q2

REPORT INFORMATION
  Report Type: 
  Country: None (occurrence: None)
  Receive Date: 20120323
  Receipt Date: 20110829
  Transmission Date: 20120825
  Serious: Yes (Other)
  Sender: FDA-Public Use
  Company Number: 163-21880-11083539

PATIENT
  Age: 84 Year
  Sex: Male

DRUGS (3)
  1. REVLIMID [Suspect]
     Indication: MONOCLONAL GAMMOPATHY
     Dosage: 25 MG, 1 IN 1 D, PO : 5 MG, FOR 28 DAYS, PO : 10 MG, FOR 27 DAYS, PO
     Route: 048
     Dates: start: 20110801
  2. REVLIMID [Suspect]
     Indication: MONOCLONAL GAMMOPATHY
     Dosage: 25 MG, 1 IN 1 D, PO : 5 MG, FOR 28 DAYS, PO : 10 MG, FOR 27 DAYS, PO
     Route: 048
     Dates: start: 20110601
  3. REVLIMID [Suspect]
     Indication: MONOCLONAL GAMMOPATHY
     Dosage: 25 MG, 1 IN 1 D, PO : 5 MG, FOR 28 DAYS, PO : 10 MG, FOR 27 DAYS, PO
     Route: 048
     Dates: start: 20110401

REACTIONS (3)
  - PANCYTOPENIA [None]
  - MONOCLONAL GAMMOPATHY [None]
  - DISEASE PROGRESSION [None]
